FAERS Safety Report 6723343-5 (Version None)
Quarter: 2010Q2

REPORT INFORMATION
  Report Type: 
  Country: None (occurrence: None)
  Receive Date: 20100511
  Receipt Date: 20100429
  Transmission Date: 20101027
  Serious: Yes (Other)
  Sender: FDA-Public Use
  Company Number: DSM-2010-00608

PATIENT
  Sex: Male
  Weight: 77 kg

DRUGS (2)
  1. SEVIKAR (OLMESARTAN MEDOXOMIL, AMLODIPINE BESILATE) (TABLET (OLMESARTA [Suspect]
     Indication: HYPERTENSION
     Dosage: 40/5 MG, ORAL
     Route: 048
     Dates: start: 20100312, end: 20100317
  2. LIPANTHYL (FENOFIBRATE (FENOFIBRATE) [Concomitant]

REACTIONS (1)
  - TACHYCARDIA [None]
